FAERS Safety Report 16213752 (Version 1)
Quarter: 2019Q2

REPORT INFORMATION
  Report Type: Spontaneous
  Country: US (occurrence: US)
  Receive Date: 20190418
  Receipt Date: 20190418
  Transmission Date: 20190711
  Serious: Yes (Other)
  Sender: FDA-Public Use
  Company Number: US-TEVA-2019-US-1038579

PATIENT
  Age: 81 Year
  Sex: Male

DRUGS (5)
  1. CARVEDILOL. [Suspect]
     Active Substance: CARVEDILOL
     Indication: SUPRAVENTRICULAR EXTRASYSTOLES
     Dosage: INITIAL DOSE NOT STATED, GRADUALLY ESCALATED TO 12.5MG BID
     Route: 065
  2. AVODART [Concomitant]
     Active Substance: DUTASTERIDE
     Dosage: .5 MILLIGRAM DAILY;
     Route: 065
  3. ATORVASTATIN [Concomitant]
     Active Substance: ATORVASTATIN
     Dosage: 80 MILLIGRAM DAILY;
     Route: 065
  4. METOPROLOL TARTRATE. [Suspect]
     Active Substance: METOPROLOL TARTRATE
     Indication: SUPRAVENTRICULAR EXTRASYSTOLES
     Dosage: 100 MILLIGRAM DAILY; HAD BEEN PRESCRIBED 6 YEARS PRIOR
     Route: 065
  5. ASPIRIN. [Concomitant]
     Active Substance: ASPIRIN
     Dosage: 325 MILLIGRAM DAILY;
     Route: 065

REACTIONS (1)
  - Hyperkalaemia [Recovered/Resolved]
